FAERS Safety Report 6793698-4 (Version None)
Quarter: 2010Q2

REPORT INFORMATION
  Report Type: 
  Country: None (occurrence: None)
  Receive Date: 20100624
  Receipt Date: 20090120
  Transmission Date: 20101027
  Serious: No
  Sender: FDA-Public Use
  Company Number: US-PFIZER INC-2009159046

PATIENT
  Age: 31 Year
  Sex: Female
  Weight: 49.9 kg

DRUGS (3)
  1. DEPO-PROVERA [Suspect]
     Indication: OFF LABEL USE
     Dosage: UNK
  2. DEPO-PROVERA [Suspect]
     Indication: ENDOMETRIOSIS
  3. CALCIUM CARBONATE [Concomitant]

REACTIONS (3)
  - INJECTION SITE SWELLING [None]
  - MALAISE [None]
  - VOMITING [None]
